FAERS Safety Report 14953997 (Version 1)
Quarter: 2018Q2

REPORT INFORMATION
  Report Type: Spontaneous
  Country: JP (occurrence: JP)
  Receive Date: 20180530
  Receipt Date: 20180530
  Transmission Date: 20180711
  Serious: Yes (Hospitalization)
  Sender: FDA-Public Use
  Company Number: JP-BAYER-2018-099101

PATIENT
  Age: 71 Year
  Sex: Male

DRUGS (3)
  1. CORTICOSTEROID NOS [Suspect]
     Active Substance: CORTICOSTEROID NOS
     Indication: SPINAL CORD INFARCTION
  2. EDARAVONE [Concomitant]
     Active Substance: EDARAVONE
     Indication: SPINAL CORD INFARCTION
  3. BAYASPIRIN 100 MG [Suspect]
     Active Substance: ASPIRIN
     Indication: SPINAL CORD INFARCTION
     Dosage: DAILY DOSE 100 MG
     Route: 048

REACTIONS (3)
  - Off label use [None]
  - Product use in unapproved indication [None]
  - Haemorrhagic infarction [None]
